FAERS Safety Report 4572144-5 (Version None)
Quarter: 2005Q1

REPORT INFORMATION
  Report Type: 
  Country: None (occurrence: None)
  Receive Date: 20050202
  Receipt Date: 20050119
  Transmission Date: 20050727
  Serious: Yes (Hospitalization)
  Sender: FDA-Public Use
  Company Number: US_0501110518

PATIENT
  Age: 1 Day
  Sex: Female
  Weight: 3 kg

DRUGS (3)
  1. HUMULIN N [Suspect]
     Dates: start: 19990101, end: 20001001
  2. HUMULIN R [Suspect]
     Dates: start: 19990101, end: 20001001
  3. PRENATAL VITAMINS [Concomitant]

REACTIONS (5)
  - BLOOD GLUCOSE DECREASED [None]
  - DRUG EXPOSURE DURING PREGNANCY [None]
  - DRUG EXPOSURE VIA BREAST MILK [None]
  - JAUNDICE NEONATAL [None]
  - NEONATAL DISORDER [None]
